FAERS Safety Report 4465131-9 (Version None)
Quarter: 2004Q3

REPORT INFORMATION
  Report Type: 
  Country: None (occurrence: None)
  Receive Date: 20040928
  Receipt Date: 20040928
  Transmission Date: 20050211
  Serious: Yes (Hospitalization)
  Sender: FDA-Public Use
  Company Number: None

PATIENT
  Age: 84 Year
  Sex: Female
  Weight: 57.9 kg

DRUGS (6)
  1. SINEMET [Suspect]
     Indication: PARKINSON'S DISEASE
     Dosage: 1.5 TABS BID ORAL
     Route: 048
     Dates: start: 20030102, end: 20040925
  2. VASOTEC [Concomitant]
  3. HYDROCHLOROTHIAZIDE [Concomitant]
  4. FOSAMAX [Concomitant]
  5. CALCIUM W/ VIT D [Concomitant]
  6. MAGNESIUM [Concomitant]

REACTIONS (6)
  - ANGLE CLOSURE GLAUCOMA [None]
  - BLINDNESS [None]
  - GLAUCOMA [None]
  - HEADACHE [None]
  - NAUSEA [None]
  - VOMITING [None]
